FAERS Safety Report 25239235 (Version 1)
Quarter: 2025Q2

REPORT INFORMATION
  Report Type: Spontaneous
  Country: US (occurrence: None)
  Receive Date: 20250424
  Receipt Date: 20250424
  Transmission Date: 20250717
  Serious: Yes (Hospitalization)
  Sender: FDA-CTU
  Company Number: None

PATIENT
  Age: 82 Year
  Sex: Male
  Weight: 100 kg

DRUGS (4)
  1. APIXABAN [Suspect]
     Active Substance: APIXABAN
     Indication: Deep vein thrombosis
  2. PRAVASTATIN [Suspect]
     Active Substance: PRAVASTATIN
  3. FLUCONAZOLE [Suspect]
     Active Substance: FLUCONAZOLE
  4. HERBALS [Suspect]
     Active Substance: HERBALS

REACTIONS (2)
  - Haematochezia [None]
  - Haematuria [None]

NARRATIVE: CASE EVENT DATE: 20250207
